FAERS Safety Report 24549324 (Version 1)
Quarter: 2024Q4

REPORT INFORMATION
  Report Type: Spontaneous
  Country: US (occurrence: None)
  Receive Date: 20241024
  Receipt Date: 20241024
  Transmission Date: 20250115
  Serious: Yes (Hospitalization)
  Sender: Public
  Company Number: None

PATIENT
  Age: 73 Year
  Sex: Female
  Weight: 81.2 kg

DRUGS (1)
  1. CARVYKTI [Suspect]
     Active Substance: CILTACABTAGENE AUTOLEUCEL

REACTIONS (10)
  - Cytokine release syndrome [None]
  - Malaise [None]
  - Oxygen saturation decreased [None]
  - C-reactive protein increased [None]
  - Nephropathy toxic [None]
  - Encephalopathy [None]
  - Aphasia [None]
  - Somnolence [None]
  - Depressed level of consciousness [None]
  - Vertigo [None]

NARRATIVE: CASE EVENT DATE: 20240725
